FAERS Safety Report 8717321 (Version 2)
Quarter: 2013Q4

REPORT INFORMATION
  Report Type: Spontaneous
  Country: US (occurrence: US)
  Receive Date: 20120810
  Receipt Date: 20131101
  Transmission Date: 20140711
  Serious: No
  Sender: FDA-Public Use
  Company Number: US-009507513-1208USA000584

PATIENT
  Sex: Male

DRUGS (2)
  1. PEGINTRON [Suspect]
     Indication: HEPATITIS C
     Dosage: UNK
  2. RIBAVIRIN [Concomitant]

REACTIONS (3)
  - Feeling abnormal [Unknown]
  - Inappropriate schedule of drug administration [Unknown]
  - No adverse event [Unknown]
